APPROVED DRUG PRODUCT: CLOBETASOL PROPIONATE
Active Ingredient: CLOBETASOL PROPIONATE
Strength: 0.05%
Dosage Form/Route: AEROSOL, FOAM;TOPICAL
Application: A211450 | Product #001 | TE Code: AB2
Applicant: GLENMARK PHARMACEUTICALS LTD
Approved: Sep 9, 2019 | RLD: No | RS: No | Type: RX